FAERS Safety Report 10432159 (Version 1)
Quarter: 2014Q3

REPORT INFORMATION
  Report Type: Spontaneous
  Country: US (occurrence: None)
  Receive Date: 20140903
  Receipt Date: 20140903
  Transmission Date: 20150326
  Serious: Yes (Hospitalization)
  Sender: FDA-Public Use
  Company Number: None

PATIENT
  Age: 61 Year
  Sex: Male
  Weight: 84.3 kg

DRUGS (2)
  1. 5-FLUOROURACIL (5-FU) [Suspect]
     Active Substance: FLUOROURACIL
  2. ELOXATIN [Suspect]
     Active Substance: OXALIPLATIN

REACTIONS (12)
  - Candida infection [None]
  - Biliary colic [None]
  - Respiratory tract infection fungal [None]
  - Pleural effusion [None]
  - Ejection fraction [None]
  - Erythema [None]
  - Nausea [None]
  - Vomiting [None]
  - Dysgeusia [None]
  - Dysphagia [None]
  - Decreased appetite [None]
  - Abdominal pain upper [None]

NARRATIVE: CASE EVENT DATE: 20140224
